FAERS Safety Report 19318573 (Version 1)
Quarter: 2021Q2

REPORT INFORMATION
  Report Type: Spontaneous
  Country: JP (occurrence: JP)
  Receive Date: 20210527
  Receipt Date: 20210527
  Transmission Date: 20210717
  Serious: Yes (Hospitalization)
  Sender: FDA-Public Use
  Company Number: JP-MYLANLABS-2021M1030504

PATIENT
  Age: 62 Year
  Sex: Male

DRUGS (6)
  1. AMPICILLIN AND SULBACTAM [Suspect]
     Active Substance: AMPICILLIN SODIUM\SULBACTAM SODIUM
     Indication: ANTIBIOTIC THERAPY
  2. PIPERACILLIN/TAZOBACTAM [Suspect]
     Active Substance: PIPERACILLIN SODIUM\TAZOBACTAM SODIUM
     Indication: ANTIBIOTIC THERAPY
  3. CEFMETAZOLE [Suspect]
     Active Substance: CEFMETAZOLE
     Indication: ANTIBIOTIC THERAPY
  4. AMPICILLIN AND SULBACTAM [Suspect]
     Active Substance: AMPICILLIN SODIUM\SULBACTAM SODIUM
     Indication: PERITONITIS BACTERIAL
     Route: 065
  5. PIPERACILLIN/TAZOBACTAM [Suspect]
     Active Substance: PIPERACILLIN SODIUM\TAZOBACTAM SODIUM
     Indication: PERITONITIS BACTERIAL
     Route: 065
  6. CEFMETAZOLE [Suspect]
     Active Substance: CEFMETAZOLE
     Indication: PERITONITIS BACTERIAL
     Route: 065

REACTIONS (3)
  - Dysbiosis [Recovered/Resolved]
  - Amoebiasis [Recovered/Resolved]
  - Abdominal abscess [Recovered/Resolved]
